FAERS Safety Report 17198615 (Version 1)
Quarter: 2019Q4

REPORT INFORMATION
  Report Type: Spontaneous
  Country: DE (occurrence: DE)
  Receive Date: 20191225
  Receipt Date: 20191225
  Transmission Date: 20200122
  Serious: Yes (Hospitalization)
  Sender: FDA-Public Use
  Company Number: DE-TEVA-2019-DE-1156104

PATIENT
  Age: 57 Year
  Sex: Male

DRUGS (5)
  1. CISPLATIN. [Suspect]
     Active Substance: CISPLATIN
     Dosage: NK MG, ADMINISTRATION ON 04.12.2017
  2. PANTOPRAZOL [Concomitant]
     Active Substance: PANTOPRAZOLE SODIUM
     Dosage: NK MG, DEMAND
  3. DOXORUBICIN [Suspect]
     Active Substance: DOXORUBICIN
     Dosage: NK MG, ADMINISTRATION ON 04.12.2017
  4. FILGRASTIM [Suspect]
     Active Substance: FILGRASTIM
     Dosage: NK MG, ADMINISTRATION ON 05.12.2016
  5. CYCLOPHOSPHAMID [Suspect]
     Active Substance: CYCLOPHOSPHAMIDE
     Dosage: NK MG, ADMINISTRATION ON 04.12.2017

REACTIONS (4)
  - General physical health deterioration [Unknown]
  - Arrhythmia [Unknown]
  - Dizziness [Unknown]
  - Palpitations [Unknown]
